FAERS Safety Report 6956735-X (Version None)
Quarter: 2010Q3

REPORT INFORMATION
  Report Type: 
  Country: None (occurrence: None)
  Receive Date: 20100830
  Receipt Date: 20100818
  Transmission Date: 20110219
  Serious: Yes (Other)
  Sender: FDA-Public Use
  Company Number: PHHY2010JP54843

PATIENT
  Age: 64 Year
  Sex: Female

DRUGS (6)
  1. ZOMETA [Suspect]
     Route: 041
  2. UFT [Suspect]
     Route: 048
  3. TAXOTERE [Suspect]
     Route: 042
  4. CYCLOPHOSPHAMIDE [Concomitant]
     Route: 042
  5. EPIRUBICIN HYDROCHLORIDE [Concomitant]
     Route: 042
  6. FLUOROURACIL [Concomitant]
     Route: 042

REACTIONS (3)
  - ALOPECIA [None]
  - CARBOHYDRATE ANTIGEN 15-3 INCREASED [None]
  - CARCINOEMBRYONIC ANTIGEN INCREASED [None]
